FAERS Safety Report 24562008 (Version 1)
Quarter: 2024Q4

REPORT INFORMATION
  Report Type: Report from Study
  Country: EG (occurrence: EG)
  Receive Date: 20241029
  Receipt Date: 20241029
  Transmission Date: 20250115
  Serious: Yes (Hospitalization, Other)
  Sender: SANDOZ
  Company Number: EG-SANDOZ-SDZ2024EG070146

PATIENT
  Age: 41 Year
  Sex: Female

DRUGS (2)
  1. HYRIMOZ [Suspect]
     Active Substance: ADALIMUMAB-ADAZ
     Indication: Crohn^s disease
     Dosage: 40 MG, Q2W, START DATE: 20-AUG-2024, SHE DIDNOT TAKE THE INDUCTION DOSE, MEDICATION ERROR REPORTED B
     Route: 058
  2. HYRIMOZ [Suspect]
     Active Substance: ADALIMUMAB-ADAZ
     Dosage: UNK
     Route: 065
     Dates: start: 2024

REACTIONS (5)
  - Shock [Recovered/Resolved]
  - Small intestinal obstruction [Unknown]
  - Product substitution [Unknown]
  - Product availability issue [Unknown]
  - Off label use [Unknown]

NARRATIVE: CASE EVENT DATE: 20240726
